FAERS Safety Report 8815965 (Version 1)
Quarter: 2012Q4

REPORT INFORMATION
  Report Type: Report from Study
  Country: BR (occurrence: BR)
  Receive Date: 20120928
  Receipt Date: 20120928
  Transmission Date: 20130627
  Serious: Yes (Other)
  Sender: FDA-Public Use
  Company Number: BR-ROCHE-1131779

PATIENT
  Sex: Female
  Weight: 58 kg

DRUGS (5)
  1. ROACTEMRA [Suspect]
     Indication: ARTHRITIS
     Route: 065
     Dates: start: 20110429, end: 20111223
  2. ROACTEMRA [Suspect]
     Indication: SPONDYLITIS
  3. MIOSAN [Concomitant]
  4. DORFLEX [Concomitant]
  5. LYRICA [Concomitant]
     Indication: PAIN

REACTIONS (7)
  - Neck pain [Recovered/Resolved]
  - Arthralgia [Recovered/Resolved]
  - Sciatica [Recovered/Resolved]
  - Immunodeficiency [Unknown]
  - Genital infection female [Recovered/Resolved]
  - Platelet count decreased [Unknown]
  - Skin disorder [Unknown]
